FAERS Safety Report 14821987 (Version 1)
Quarter: 2018Q2

REPORT INFORMATION
  Report Type: Spontaneous
  Country: US (occurrence: US)
  Receive Date: 20180427
  Receipt Date: 20180427
  Transmission Date: 20180711
  Serious: Yes (Other)
  Sender: FDA-Public Use
  Company Number: US-PFIZER INC-2018168255

PATIENT
  Age: 56 Year
  Sex: Female

DRUGS (1)
  1. XELJANZ XR [Suspect]
     Active Substance: TOFACITINIB CITRATE
     Dosage: 11 MG, UNK

REACTIONS (11)
  - Contusion [Unknown]
  - Musculoskeletal stiffness [Unknown]
  - Arthralgia [Unknown]
  - Myalgia [Unknown]
  - Peripheral swelling [Unknown]
  - Nephrolithiasis [Unknown]
  - Pain in extremity [Unknown]
  - Chest discomfort [Recovering/Resolving]
  - Condition aggravated [Unknown]
  - Joint swelling [Unknown]
  - Neck pain [Unknown]
